FAERS Safety Report 16150443 (Version 2)
Quarter: 2019Q2

REPORT INFORMATION
  Report Type: Report from Study
  Country: US (occurrence: US)
  Receive Date: 20190402
  Receipt Date: 20190514
  Transmission Date: 20190711
  Serious: Yes (Hospitalization)
  Sender: FDA-Public Use
  Company Number: US-ACTELION-A-NJ2019-188381

PATIENT
  Sex: Female

DRUGS (15)
  1. BUMEX [Concomitant]
     Active Substance: BUMETANIDE
  2. ESCITALOPRAM [Concomitant]
     Active Substance: ESCITALOPRAM OXALATE
  3. WARFARIN [Concomitant]
     Active Substance: WARFARIN
  4. TRACLEER [Suspect]
     Active Substance: BOSENTAN
     Indication: PULMONARY ARTERIAL HYPERTENSION
     Dosage: 125 MG, BID
     Route: 048
     Dates: start: 20140108
  5. LEXAPRO [Concomitant]
     Active Substance: ESCITALOPRAM OXALATE
  6. NYSTATIN. [Concomitant]
     Active Substance: NYSTATIN
  7. OXYGEN. [Concomitant]
     Active Substance: OXYGEN
  8. TRAMADOL. [Concomitant]
     Active Substance: TRAMADOL
  9. SPIRONOLACTONE. [Concomitant]
     Active Substance: SPIRONOLACTONE
  10. BUMETANIDE. [Concomitant]
     Active Substance: BUMETANIDE
  11. COLACE [Concomitant]
     Active Substance: DOCUSATE SODIUM
  12. ULTRAM [Concomitant]
     Active Substance: TRAMADOL HYDROCHLORIDE
  13. ALBUTEROL. [Concomitant]
     Active Substance: ALBUTEROL
  14. TYLENOL [Concomitant]
     Active Substance: ACETAMINOPHEN
  15. ATORVASTATIN [Concomitant]
     Active Substance: ATORVASTATIN

REACTIONS (6)
  - Finger deformity [Not Recovered/Not Resolved]
  - Skin discolouration [Not Recovered/Not Resolved]
  - Atrial fibrillation [Unknown]
  - Cellulitis [Recovered/Resolved]
  - Dyspnoea [Recovering/Resolving]
  - Pain in extremity [Unknown]
